FAERS Safety Report 22351648 (Version 1)
Quarter: 2023Q2

REPORT INFORMATION
  Report Type: Spontaneous
  Country: US (occurrence: None)
  Receive Date: 20230522
  Receipt Date: 20230522
  Transmission Date: 20230722
  Serious: Yes (Other)
  Sender: FDA-Public Use
  Company Number: 2023A118155

PATIENT
  Age: 65 Year
  Sex: Female

DRUGS (2)
  1. FULVESTRANT [Suspect]
     Active Substance: FULVESTRANT
     Indication: Invasive ductal breast carcinoma
     Route: 030
  2. ABEMACICLIB [Concomitant]
     Active Substance: ABEMACICLIB

REACTIONS (3)
  - Malignant neoplasm progression [Unknown]
  - Multiple organ dysfunction syndrome [Unknown]
  - Drug ineffective [Unknown]
